FAERS Safety Report 19215426 (Version 1)
Quarter: 2021Q2

REPORT INFORMATION
  Report Type: Report from Study
  Country: None (occurrence: BR)
  Receive Date: 20210504
  Receipt Date: 20210504
  Transmission Date: 20210717
  Serious: Yes (Other)
  Sender: FDA-Public Use
  Company Number: BR-ABBVIE-21K-020-3886816-00

PATIENT
  Sex: Female

DRUGS (1)
  1. SKYRIZI [Suspect]
     Active Substance: RISANKIZUMAB-RZAA
     Indication: PSORIASIS
     Dosage: UNSPECIFIC DOSE
     Route: 058
     Dates: start: 20201218

REACTIONS (5)
  - Bone disorder [Unknown]
  - Unevaluable event [Unknown]
  - Grip strength decreased [Unknown]
  - Osteoarthritis [Unknown]
  - Psoriatic arthropathy [Unknown]
